FAERS Safety Report 16384403 (Version 1)
Quarter: 2019Q2

REPORT INFORMATION
  Report Type: Spontaneous
  Country: US (occurrence: US)
  Receive Date: 20190531
  Receipt Date: 20190531
  Transmission Date: 20190711
  Serious: Yes (Hospitalization)
  Sender: FDA-Public Use
  Company Number: None

PATIENT
  Age: 29 Year
  Sex: Female

DRUGS (4)
  1. SYMDEKO [Concomitant]
     Active Substance: IVACAFTOR\TEZACAFTOR
  2. TOBI PODHALER [Suspect]
     Active Substance: TOBRAMYCIN
     Indication: CYSTIC FIBROSIS
     Route: 055
     Dates: start: 20130618, end: 20190322
  3. SYMDEKO [Suspect]
     Active Substance: IVACAFTOR\TEZACAFTOR
     Indication: CYSTIC FIBROSIS
     Route: 048
     Dates: start: 20180228
  4. SOD CHL 7% [Concomitant]

REACTIONS (2)
  - Dyspnoea [None]
  - Drug hypersensitivity [None]

NARRATIVE: CASE EVENT DATE: 20190530
